FAERS Safety Report 25499945 (Version 1)
Quarter: 2025Q3

REPORT INFORMATION
  Report Type: Report from Study
  Country: CA (occurrence: CA)
  Receive Date: 20250701
  Receipt Date: 20250701
  Transmission Date: 20251021
  Serious: Yes (Hospitalization, Other)
  Sender: ABBVIE
  Company Number: CA-ABBVIE-6346418

PATIENT
  Age: 82 Year
  Sex: Female

DRUGS (2)
  1. RINVOQ [Suspect]
     Active Substance: UPADACITINIB
     Indication: Rheumatoid arthritis
     Dosage: FORM STRENGTH: 15 MG
     Route: 048
  2. TILDRAKIZUMAB [Suspect]
     Active Substance: TILDRAKIZUMAB
     Indication: Product used for unknown indication
     Route: 065
     Dates: start: 202504

REACTIONS (19)
  - Lung neoplasm [Unknown]
  - Dyspnoea [Unknown]
  - Cough [Unknown]
  - Nausea [Recovered/Resolved]
  - Post-tussive vomiting [Not Recovered/Not Resolved]
  - Faeces discoloured [Unknown]
  - Constipation [Unknown]
  - Abdominal pain [Unknown]
  - Hypoxia [Unknown]
  - Rhinorrhoea [Recovered/Resolved]
  - Feeling hot [Unknown]
  - Decreased appetite [Unknown]
  - Abnormal loss of weight [Unknown]
  - Fatigue [Unknown]
  - Somnolence [Unknown]
  - Visual impairment [Recovered/Resolved]
  - Pneumonia [Unknown]
  - Hypercalcaemia [Unknown]
  - Lung consolidation [Unknown]

NARRATIVE: CASE EVENT DATE: 20250401
